FAERS Safety Report 10459568 (Version 3)
Quarter: 2015Q2

REPORT INFORMATION
  Report Type: Report from Study
  Country: US (occurrence: US)
  Receive Date: 20140917
  Receipt Date: 20150608
  Transmission Date: 20150821
  Serious: No
  Sender: FDA-Public Use
  Company Number: US-ALEXION-A201403556

PATIENT

DRUGS (1)
  1. SOLIRIS [Suspect]
     Active Substance: ECULIZUMAB
     Indication: PRODUCT USED FOR UNKNOWN INDICATION
     Dosage: UNK
     Route: 042
     Dates: end: 20150421

REACTIONS (8)
  - Cyst [Unknown]
  - Malaise [Unknown]
  - Contusion [Unknown]
  - Pain in extremity [Not Recovered/Not Resolved]
  - Nausea [Recovered/Resolved]
  - Fatigue [Unknown]
  - Weight decreased [Unknown]
  - Diarrhoea [Recovered/Resolved]

NARRATIVE: CASE EVENT DATE: 20140910
